FAERS Safety Report 8376634-9 (Version None)
Quarter: 2012Q2

REPORT INFORMATION
  Report Type: 
  Country: None (occurrence: None)
  Receive Date: 20120522
  Receipt Date: 20120514
  Transmission Date: 20120825
  Serious: Yes (Other)
  Sender: FDA-Public Use
  Company Number: CN-PFIZER INC-2012117008

PATIENT
  Age: 81 Year
  Sex: Female

DRUGS (3)
  1. FLUCONAZOLE [Suspect]
     Indication: ANTI-INFECTIVE THERAPY
     Route: 042
  2. MOXIFLOXACIN [Suspect]
     Indication: ANTI-INFECTIVE THERAPY
     Route: 042
  3. ITRACONAZOLE [Suspect]
     Indication: ANTI-INFECTIVE THERAPY
     Dosage: 200 MG, 1X/DAY
     Route: 048
     Dates: start: 20110319, end: 20110321

REACTIONS (1)
  - HYPERBILIRUBINAEMIA [None]
